FAERS Safety Report 25983089 (Version 1)
Quarter: 2025Q4

REPORT INFORMATION
  Report Type: Spontaneous
  Country: GB (occurrence: GB)
  Receive Date: 20251031
  Receipt Date: 20251031
  Transmission Date: 20260118
  Serious: Yes (Disabling, Other)
  Sender: TORRENT PHARMA INC.
  Company Number: None

PATIENT
  Sex: Male
  Weight: 82 kg

DRUGS (1)
  1. APIXABAN [Suspect]
     Active Substance: APIXABAN
     Indication: Cerebrovascular accident
     Dosage: 5MG
     Route: 065

REACTIONS (3)
  - Medication error [Unknown]
  - Depression [Recovered/Resolved]
  - Irritability [Unknown]
